FAERS Safety Report 7636612-1 (Version None)
Quarter: 2011Q3

REPORT INFORMATION
  Report Type: 
  Country: None (occurrence: None)
  Receive Date: 20110726
  Receipt Date: 20110714
  Transmission Date: 20111222
  Serious: No
  Sender: FDA-Public Use
  Company Number: US-BIOGENIDEC-2011BI026563

PATIENT
  Age: 54 Year
  Sex: Female

DRUGS (2)
  1. AVONEX [Concomitant]
     Indication: MULTIPLE SCLEROSIS
     Route: 030
     Dates: start: 20010801, end: 20091228
  2. TYSABRI [Suspect]
     Indication: MULTIPLE SCLEROSIS
     Route: 042

REACTIONS (7)
  - NECK PAIN [None]
  - WRIST FRACTURE [None]
  - MOLLUSCUM CONTAGIOSUM [None]
  - JOINT SWELLING [None]
  - HEADACHE [None]
  - COORDINATION ABNORMAL [None]
  - INFLAMMATION [None]
